FAERS Safety Report 12569678 (Version 3)
Quarter: 2016Q3

REPORT INFORMATION
  Report Type: Spontaneous
  Country: DE (occurrence: DE)
  Receive Date: 20160719
  Receipt Date: 20160812
  Transmission Date: 20161109
  Serious: Yes (Death)
  Sender: FDA-Public Use
  Company Number: DE-ELI_LILLY_AND_COMPANY-DE201607005756

PATIENT
  Age: 69 Year
  Sex: Male

DRUGS (15)
  1. PANTOPRAZOL [Concomitant]
     Active Substance: PANTOPRAZOLE SODIUM
  2. BISOPROLOL [Concomitant]
     Active Substance: BISOPROLOL
  3. FERROSANOL [Concomitant]
     Active Substance: FERROUS GLUCONATE
  4. ADCIRCA [Suspect]
     Active Substance: TADALAFIL
     Indication: PULMONARY ARTERIAL HYPERTENSION
     Dosage: 20 MG, UNKNOWN
     Dates: start: 20160421, end: 20160512
  5. ADCIRCA [Suspect]
     Active Substance: TADALAFIL
     Dosage: 40 MG, QD
     Route: 048
     Dates: start: 20160512
  6. SIMVASTATIN. [Concomitant]
     Active Substance: SIMVASTATIN
  7. HCT [Concomitant]
     Active Substance: HYDROCHLOROTHIAZIDE
  8. MARCUMAR [Concomitant]
     Active Substance: PHENPROCOUMON
  9. FORADIL [Concomitant]
     Active Substance: FORMOTEROL FUMARATE
  10. LYRICA [Concomitant]
     Active Substance: PREGABALIN
     Indication: DIABETIC FOOT
  11. RAMIPRIL. [Concomitant]
     Active Substance: RAMIPRIL
  12. PALLADON [Concomitant]
     Active Substance: HYDROMORPHONE
  13. KALINOR RETARD P [Concomitant]
     Active Substance: POTASSIUM CHLORIDE
  14. TAMSULOSIN [Concomitant]
     Active Substance: TAMSULOSIN
  15. BETA-ACETYLDIGOXIN [Concomitant]
     Active Substance: ACETYLDIGITOXIN

REACTIONS (1)
  - Cardiac failure [Fatal]

NARRATIVE: CASE EVENT DATE: 201605
